FAERS Safety Report 24611796 (Version 1)
Quarter: 2024Q4

REPORT INFORMATION
  Report Type: Spontaneous
  Country: CN (occurrence: CN)
  Receive Date: 20241113
  Receipt Date: 20241113
  Transmission Date: 20250115
  Serious: Yes (Other)
  Sender: BAXTER
  Company Number: None

PATIENT
  Age: 75 Year
  Sex: Male

DRUGS (4)
  1. CYCLOPHOSPHAMIDE [Suspect]
     Active Substance: CYCLOPHOSPHAMIDE
     Indication: Plasma cell leukaemia
     Dosage: 0.5 G, ONCE A DAY
     Route: 041
     Dates: start: 20240711, end: 20240711
  2. BORTEZOMIB [Suspect]
     Active Substance: BORTEZOMIB
     Indication: Plasma cell leukaemia
     Dosage: 2.1 MG, ONCE A DAY (D1, D4, D8, D11)
     Route: 058
     Dates: start: 20240711, end: 20240711
  3. DARATUMUMAB [Suspect]
     Active Substance: DARATUMUMAB
     Indication: Plasma cell leukaemia
     Dosage: 1.8 G D1, D8, 960 MG D15, D22, ONCE A DAY
     Route: 041
     Dates: start: 20240711, end: 20240711
  4. DEXAMETHASONE [Concomitant]
     Active Substance: DEXAMETHASONE
     Indication: Plasma cell leukaemia
     Dosage: 40 MG D1, D4, D8, D11 ONCE A DAY, D11 + CTX 500 MG D1, D8, D15, D22, Q4W
     Route: 048
     Dates: start: 20240711, end: 20240711

REACTIONS (3)
  - Hyperpyrexia [Recovered/Resolved]
  - Infusion related reaction [Recovering/Resolving]
  - Chills [Unknown]

NARRATIVE: CASE EVENT DATE: 20240711
